FAERS Safety Report 5793453-8 (Version None)
Quarter: 2008Q2

REPORT INFORMATION
  Report Type: 
  Country: None (occurrence: None)
  Receive Date: 20080627
  Receipt Date: 20080618
  Transmission Date: 20081010
  Serious: Yes (Hospitalization, Other)
  Sender: FDA-Public Use
  Company Number: US-MERCK-0706USA03751

PATIENT
  Age: 68 Year
  Sex: Female
  Weight: 61 kg

DRUGS (2)
  1. FOSAMAX [Suspect]
     Indication: OSTEOPOROSIS
     Route: 048
     Dates: start: 20040315, end: 20070917
  2. FOSAMAX PLUS D [Suspect]
     Indication: OSTEOPOROSIS
     Route: 048
     Dates: start: 20070901

REACTIONS (12)
  - ANXIETY [None]
  - BREAST CANCER [None]
  - DYSPHAGIA [None]
  - INFECTION [None]
  - MYOFASCIAL PAIN SYNDROME [None]
  - ORAL LICHEN PLANUS [None]
  - OSTEONECROSIS [None]
  - PERIODONTAL DISEASE [None]
  - RESORPTION BONE INCREASED [None]
  - TONGUE DISORDER [None]
  - TOOTH DISORDER [None]
  - TOOTH LOSS [None]
